FAERS Safety Report 9307680 (Version 1)
Quarter: 2013Q2

REPORT INFORMATION
  Report Type: Spontaneous
  Country: US (occurrence: US)
  Receive Date: 20130524
  Receipt Date: 20130524
  Transmission Date: 20140414
  Serious: No
  Sender: FDA-Public Use
  Company Number: US-009507513-1305USA014139

PATIENT
  Sex: Female
  Weight: 66.67 kg

DRUGS (1)
  1. IMPLANON [Suspect]
     Dosage: UNK DF, UNK
     Route: 059
     Dates: end: 20130501

REACTIONS (1)
  - Expired drug administered [Unknown]
